FAERS Safety Report 5337547-X (Version None)
Quarter: 2007Q2

REPORT INFORMATION
  Report Type: 
  Country: None (occurrence: None)
  Receive Date: 20070524
  Receipt Date: 20070511
  Transmission Date: 20071010
  Serious: Yes (Other)
  Sender: FDA-Public Use
  Company Number: 2007S1002783

PATIENT
  Age: 74 Year
  Sex: Female
  Weight: 63.5036 kg

DRUGS (14)
  1. FENTANYL TRANSDERMAL SYSTEM [Suspect]
     Indication: ARTHRALGIA
     Dosage: 100 UG/HR; EVERY 3 DAYS; TRANSDERMAL
     Route: 062
     Dates: start: 20060101
  2. FENTANYL TRANSDERMAL SYSTEM [Suspect]
     Indication: NEURALGIA
     Dosage: 100 UG/HR; EVERY 3 DAYS; TRANSDERMAL
     Route: 062
     Dates: start: 20060101
  3. FENTANYL TRANSDERMAL SYSTEM [Suspect]
     Indication: PAIN
     Dosage: 100 UG/HR; EVERY 3 DAYS; TRANSDERMAL
     Route: 062
     Dates: start: 20060101
  4. ASPIRIN [Concomitant]
  5. TOCOPHEROL CONCENTRATE CAP [Concomitant]
  6. CENTRIUM SILVER /01292501/ [Concomitant]
  7. IMDUR [Concomitant]
  8. RYTHMOL [Concomitant]
  9. SOMA [Concomitant]
  10. XANAX [Concomitant]
  11. DILTIAZEM [Concomitant]
  12. ENDOCET [Concomitant]
  13. AMBIEN [Concomitant]
  14. ZOCOR [Concomitant]

REACTIONS (5)
  - DIZZINESS [None]
  - DYSPNOEA [None]
  - PANIC ATTACK [None]
  - PHARMACEUTICAL PRODUCT COMPLAINT [None]
  - SENSATION OF FOREIGN BODY [None]
